FAERS Safety Report 8509680-2 (Version None)
Quarter: 2012Q2

REPORT INFORMATION
  Report Type: 
  Country: None (occurrence: None)
  Receive Date: 20120405
  Receipt Date: 20090626
  Transmission Date: 20120825
  Serious: Yes (Other)
  Sender: FDA-Public Use
  Company Number: PHEH2009US04456

PATIENT
  Age: 48 Year
  Sex: Female
  Weight: 49 kg

DRUGS (5)
  1. CYMBALTA [Concomitant]
  2. ATIVAN [Concomitant]
  3. CALCIUM CARBONATE [Concomitant]
  4. RECLAST [Suspect]
     Indication: OSTEOPOROSIS POSTMENOPAUSAL
     Dosage: 5 MG, INTRAVENOUS
     Route: 042
     Dates: start: 20090504, end: 20090504
  5. MULTIVITAMINS (ASCORBIC ACID, ERGOCALCIFEROL, FOLIC ACID, NICOTINAMIDE [Concomitant]

REACTIONS (1)
  - THROAT TIGHTNESS [None]
